FAERS Safety Report 8619843-3 (Version None)
Quarter: 2012Q3

REPORT INFORMATION
  Report Type: 
  Country: None (occurrence: None)
  Receive Date: 20120824
  Receipt Date: 20120814
  Transmission Date: 20120928
  Serious: Yes (Death)
  Sender: FDA-Public Use
  Company Number: US-MYLANLABS-2011S1010434

PATIENT
  Age: 32 Year
  Sex: Female
  Weight: 93.9 kg

DRUGS (5)
  1. FENTANYL-100 [Suspect]
     Indication: PAIN
     Dosage: Q3D
     Route: 062
     Dates: start: 20090522, end: 20090602
  2. LYRICA [Concomitant]
  3. CYMBALTA [Concomitant]
  4. ALPRAZOLAM [Concomitant]
  5. AMITRIPTYLINE HYDROCHLORIDE [Concomitant]

REACTIONS (1)
  - TOXICITY TO VARIOUS AGENTS [None]
